FAERS Safety Report 4789223-X (Version None)
Quarter: 2005Q4

REPORT INFORMATION
  Report Type: 
  Country: None (occurrence: None)
  Receive Date: 20051004
  Receipt Date: 20050920
  Transmission Date: 20060501
  Serious: No
  Sender: FDA-Public Use
  Company Number: 217689

PATIENT
  Age: 66 Year
  Sex: Male
  Weight: 66.7 kg

DRUGS (16)
  1. AVASTIN [Suspect]
     Indication: PANCREATIC CARCINOMA METASTATIC
     Dosage: 5 MG/KG, Q2W, INTRAVENOUS
     Route: 042
     Dates: start: 20050119, end: 20050817
  2. TEMOZOLOMIDE (TEMOZOLOMIDE) [Suspect]
     Indication: PANCREATIC CARCINOMA METASTATIC
     Dosage: 150 MG/M2, ORAL
     Route: 048
     Dates: start: 20050119, end: 20050823
  3. ACTONEL [Concomitant]
  4. ACYCLOVIR [Concomitant]
  5. B-COMPLEX VITAMIN (VITAMIN B COMPLEX) [Concomitant]
  6. BACTRIM [Concomitant]
  7. COMPAZINE [Concomitant]
  8. FLUDROCORTISONE ACETATE [Concomitant]
  9. LISINOPRIL [Concomitant]
  10. MULTI-VITAMINS [Concomitant]
  11. PERCOCET [Concomitant]
  12. PREDNISONE [Concomitant]
  13. PRILOSEC [Concomitant]
  14. VITAMIN D (CHOLECALCIFEROL) [Concomitant]
  15. ZOFRAN [Concomitant]
  16. SANDOSTATIN [Concomitant]

REACTIONS (4)
  - IMMUNOSUPPRESSION [None]
  - LYMPHADENOPATHY [None]
  - METASTASES TO LUNG [None]
  - MYCOBACTERIUM AVIUM COMPLEX INFECTION [None]
